FAERS Safety Report 17563860 (Version 2)
Quarter: 2020Q1

REPORT INFORMATION
  Report Type: Spontaneous
  Country: FR (occurrence: FR)
  Receive Date: 20200320
  Receipt Date: 20200327
  Transmission Date: 20200409
  Serious: Yes (Hospitalization)
  Sender: FDA-Public Use
  Company Number: FR-EMD SERONO-E2B_90075890

PATIENT
  Age: 34 Year
  Sex: Female
  Weight: 84 kg

DRUGS (3)
  1. DECAPEPTYL (ACETATE) [Suspect]
     Active Substance: TRIPTORELIN ACETATE
     Indication: CONTROLLED OVARIAN STIMULATION
     Dosage: FORM STRENGTH: 0.1 (UNSPECIFIED UNIT)
     Route: 058
     Dates: start: 20190606, end: 20190930
  2. OVITRELLE [Suspect]
     Active Substance: CHORIOGONADOTROPIN ALFA
     Indication: CONTROLLED OVARIAN STIMULATION
     Route: 058
     Dates: start: 20190701, end: 20190701
  3. BEMFOLA [Suspect]
     Active Substance: FOLLITROPIN
     Indication: CONTROLLED OVARIAN STIMULATION
     Dosage: FORM STRENGTH: 150 (UNSPECIFIED UNIT)
     Route: 058
     Dates: start: 20190620, end: 20190630

REACTIONS (3)
  - Deep vein thrombosis [Recovered/Resolved]
  - Ovarian hyperstimulation syndrome [Recovered/Resolved]
  - Abortion spontaneous [Recovered/Resolved with Sequelae]

NARRATIVE: CASE EVENT DATE: 20190710
